FAERS Safety Report 5316057-X (Version None)
Quarter: 2007Q2

REPORT INFORMATION
  Report Type: 
  Country: None (occurrence: None)
  Receive Date: 20070503
  Receipt Date: 20070424
  Transmission Date: 20071010
  Serious: Yes (Hospitalization, Other)
  Sender: FDA-Public Use
  Company Number: GB-ELI_LILLY_AND_COMPANY-GB200704005431

PATIENT
  Age: 53 Year
  Sex: Male

DRUGS (5)
  1. HUMALOG [Suspect]
     Indication: DIABETES MELLITUS
     Dosage: 8 UNK, EACH MORNING
     Dates: start: 20040401
  2. HUMALOG [Suspect]
     Dosage: 10 UNK, OTHER
     Dates: start: 20040401
  3. HUMALOG [Suspect]
     Dosage: 10 UNK, EACH EVENING
     Dates: start: 20040401
  4. LEVEMIR [Concomitant]
     Indication: DIABETES MELLITUS
     Dosage: 50 UNK, EACH EVENING
     Dates: start: 20060401
  5. LOSARTAN POSTASSIUM [Concomitant]
     Dosage: 5 MG, DAILY (1/D)

REACTIONS (2)
  - BLOOD GLUCOSE INCREASED [None]
  - INJECTION SITE CYST [None]
